FAERS Safety Report 12623131 (Version 1)
Quarter: 2016Q3

REPORT INFORMATION
  Report Type: Spontaneous
  Country: CM (occurrence: CM)
  Receive Date: 20160804
  Receipt Date: 20160804
  Transmission Date: 20161109
  Serious: Yes (Death, Life-Threatening, Hospitalization, Disabling, Other)
  Sender: FDA-Public Use
  Company Number: CM-IMPAX LABORATORIES, INC-2016-IPXL-00849

PATIENT
  Age: 26 Year
  Sex: Male
  Weight: 67 kg

DRUGS (4)
  1. MECTIZAN [Suspect]
     Active Substance: IVERMECTIN
     Indication: PROPHYLAXIS
     Dosage: 4 TABLETS AT AN UNKNOWN FREQUENCY
     Route: 065
     Dates: start: 20160711
  2. ALBENZA [Suspect]
     Active Substance: ALBENDAZOLE
     Indication: PROPHYLAXIS
     Dosage: 1 TABLET AT AN UNKNOWN FREQUENCY
     Route: 065
     Dates: start: 20160711
  3. RINGER LACTATE                     /01126301/ [Concomitant]
     Indication: PRODUCT USED FOR UNKNOWN INDICATION
     Dosage: UNKNOWN
     Route: 065
  4. MECTIZAN [Suspect]
     Active Substance: IVERMECTIN
     Dosage: UNK

REACTIONS (6)
  - Diarrhoea [Fatal]
  - Coma [Fatal]
  - Pyrexia [Fatal]
  - Meningitis [Fatal]
  - Pruritus [Fatal]
  - Asthenia [Fatal]

NARRATIVE: CASE EVENT DATE: 20160711
